FAERS Safety Report 9905551 (Version 2)
Quarter: 2014Q1

REPORT INFORMATION
  Report Type: Report from Study
  Country: US (occurrence: US)
  Receive Date: 20140218
  Receipt Date: 20140218
  Transmission Date: 20141002
  Serious: Yes (Other)
  Sender: FDA-Public Use
  Company Number: US-ABBVIE-09P-163-0617176-00

PATIENT
  Sex: Female
  Weight: 52.21 kg

DRUGS (7)
  1. HUMIRA 40 MG/0.8 ML PEN [Suspect]
     Indication: PSORIATIC ARTHROPATHY
     Route: 058
     Dates: start: 2004, end: 201312
  2. HUMIRA 40 MG/0.8 ML PEN [Suspect]
     Dosage: DOSE DECREASED
  3. PREDNISONE [Suspect]
     Indication: PSORIATIC ARTHROPATHY
     Dosage: WAS CONSTANT, NOW PRN
     Dates: start: 1998
  4. METHOTREXATE [Concomitant]
     Indication: PSORIATIC ARTHROPATHY
     Dates: start: 1999
  5. FOLIC ACID [Concomitant]
     Indication: VITAMIN SUPPLEMENTATION
  6. OXYCODONE [Concomitant]
     Indication: PAIN
  7. KLONOPIN [Concomitant]
     Indication: INSOMNIA

REACTIONS (12)
  - Blindness transient [Not Recovered/Not Resolved]
  - Visual acuity reduced [Unknown]
  - Rheumatoid arthritis [Not Recovered/Not Resolved]
  - Cough [Not Recovered/Not Resolved]
  - Sinusitis [Not Recovered/Not Resolved]
  - Rash papular [Not Recovered/Not Resolved]
  - Rash pruritic [Not Recovered/Not Resolved]
  - Migraine [Not Recovered/Not Resolved]
  - Glaucoma [Recovered/Resolved]
  - Cataract [Recovered/Resolved]
  - Blindness [Recovered/Resolved]
  - Visual impairment [Recovered/Resolved]
